FAERS Safety Report 5904778-7 (Version None)
Quarter: 2008Q3

REPORT INFORMATION
  Report Type: 
  Country: None (occurrence: None)
  Receive Date: 20080909
  Receipt Date: 20080711
  Transmission Date: 20090109
  Serious: Yes (Death)
  Sender: FDA-Public Use
  Company Number: 163-20785-08050808

PATIENT
  Age: 79 Year
  Sex: Female

DRUGS (2)
  1. THALOMID [Suspect]
     Indication: MULTIPLE MYELOMA
     Dosage: 50 MG, 1 IN 1 D, ORAL : 100MG, 50MG, DAILY, ORAL
     Route: 048
     Dates: start: 20070828, end: 20071101
  2. THALOMID [Suspect]
     Indication: MULTIPLE MYELOMA
     Dosage: 50 MG, 1 IN 1 D, ORAL : 100MG, 50MG, DAILY, ORAL
     Route: 048
     Dates: start: 20080213, end: 20080401

REACTIONS (2)
  - INTESTINAL PERFORATION [None]
  - SEPSIS [None]
